FAERS Safety Report 6730563-2 (Version None)
Quarter: 2010Q2

REPORT INFORMATION
  Report Type: 
  Country: None (occurrence: None)
  Receive Date: 20100518
  Receipt Date: 20100505
  Transmission Date: 20101027
  Serious: Yes (Other)
  Sender: FDA-Public Use
  Company Number: US-JNJCH-2010011152

PATIENT
  Age: 5 Year
  Sex: Female
  Weight: 18.1 kg

DRUGS (4)
  1. CHILDREN'S BENADRYL ALLERGY [Suspect]
     Indication: DRUG USE FOR UNKNOWN INDICATION
     Dosage: TEXT:RECOMMENDED DOSAGE
     Route: 048
  2. CHILDREN'S MOTRIN [Suspect]
     Indication: DRUG USE FOR UNKNOWN INDICATION
     Dosage: TEXT:UNKNOWN
     Route: 048
  3. CHILDREN'S MOTRIN [Suspect]
     Dosage: TEXT:UNKNOWN
     Route: 048
  4. CHILDREN'S TYLENOL SUSPENSION [Suspect]
     Indication: DRUG USE FOR UNKNOWN INDICATION
     Dosage: TEXT:UNKNOWN
     Route: 048

REACTIONS (4)
  - DECREASED APPETITE [None]
  - GASTRIC DISORDER [None]
  - PRODUCT QUALITY ISSUE [None]
  - WEIGHT DECREASED [None]
